FAERS Safety Report 8895857 (Version 1)
Quarter: 2012Q4

REPORT INFORMATION
  Report Type: 
  Country: US (occurrence: US)
  Receive Date: 20121107
  Receipt Date: 20121107
  Transmission Date: 20130627
  Serious: No
  Sender: FDA-Public Use
  Company Number: US-B.I. PHARMACEUTICALS,INC./RIDGEFIELD-2012-BP-27253BP

PATIENT
  Age: 71 Year
  Sex: Male

DRUGS (6)
  1. PRADAXA [Suspect]
     Indication: ATRIAL FIBRILLATION
     Dosage: 300 mg
     Route: 048
     Dates: start: 201209
  2. PRAVASTATIN [Concomitant]
     Indication: DYSLIPIDAEMIA
  3. LISINOPRIL [Concomitant]
     Indication: HYPERTENSION
  4. METOPROLOL [Concomitant]
     Indication: CORONARY ARTERY DISEASE
  5. ASPIRIN [Concomitant]
     Indication: CORONARY ARTERY DISEASE
  6. FISH OIL [Concomitant]
     Indication: DYSLIPIDAEMIA

REACTIONS (3)
  - Oropharyngeal pain [Not Recovered/Not Resolved]
  - Dysphagia [Not Recovered/Not Resolved]
  - Odynophagia [Not Recovered/Not Resolved]
